FAERS Safety Report 5657638-3 (Version None)
Quarter: 2008Q1

REPORT INFORMATION
  Report Type: 
  Country: None (occurrence: None)
  Receive Date: 20080310
  Receipt Date: 20080226
  Transmission Date: 20080703
  Serious: Yes (Hospitalization)
  Sender: FDA-Public Use
  Company Number: CH-GILEAD-2008-0015312

PATIENT
  Age: 60 Year
  Sex: Male

DRUGS (10)
  1. TRUVADA [Suspect]
     Indication: HIV INFECTION
     Route: 048
     Dates: start: 20070901, end: 20080104
  2. ATAZANAVIR SULFATE [Suspect]
     Indication: HIV INFECTION
     Route: 048
     Dates: end: 20080104
  3. NORVIR [Suspect]
     Indication: HIV INFECTION
     Route: 048
     Dates: end: 20080104
  4. INSULIN [Concomitant]
  5. AVELOX [Concomitant]
  6. CEPHORAL [Concomitant]
  7. FUROSEMIDE [Concomitant]
  8. FLUCONAZOLE [Concomitant]
  9. COTRIMOXAZOLE [Concomitant]
  10. ATACAND [Concomitant]

REACTIONS (4)
  - NEPHRITIS INTERSTITIAL [None]
  - PLEURAL EFFUSION [None]
  - RENAL FAILURE ACUTE [None]
  - RENAL TUBULAR NECROSIS [None]
